FAERS Safety Report 5929093-7 (Version None)
Quarter: 2008Q4

REPORT INFORMATION
  Report Type: 
  Country: None (occurrence: None)
  Receive Date: 20081024
  Receipt Date: 20081014
  Transmission Date: 20090506
  Serious: Yes (Hospitalization, Other)
  Sender: FDA-Public Use
  Company Number: CO-JNJFOC-20081003433

PATIENT
  Age: 41 Year
  Sex: Female

DRUGS (6)
  1. REMICADE [Suspect]
     Dosage: 11TH DOSE
     Route: 042
  2. REMICADE [Suspect]
     Dosage: 9 INFUSIONS ON UNKNOWN DATES
     Route: 042
  3. REMICADE [Suspect]
     Indication: RHEUMATOID ARTHRITIS
     Route: 042
  4. METHOTREXATE [Concomitant]
     Indication: RHEUMATOID ARTHRITIS
  5. FOLIC ACID [Concomitant]
  6. CALCIUM [Concomitant]

REACTIONS (1)
  - DISSEMINATED TUBERCULOSIS [None]
